FAERS Safety Report 6489973-3 (Version None)
Quarter: 2009Q4

REPORT INFORMATION
  Report Type: 
  Country: None (occurrence: None)
  Receive Date: 20091211
  Receipt Date: 20091204
  Transmission Date: 20100525
  Serious: Yes (Other)
  Sender: FDA-Public Use
  Company Number: PHEH2009US15008

PATIENT
  Sex: Female
  Weight: 48 kg

DRUGS (5)
  1. EXJADE [Suspect]
     Indication: IRON OVERLOAD
     Dosage: 1000 MG/DAY
     Route: 048
     Dates: start: 20091015, end: 20091109
  2. COREG [Concomitant]
     Route: 048
  3. LIPITOR [Concomitant]
     Route: 048
  4. MULTI-VITAMIN [Concomitant]
     Route: 048
  5. PACERONE [Concomitant]
     Route: 048

REACTIONS (6)
  - ABASIA [None]
  - ABDOMINAL PAIN UPPER [None]
  - LUNG DISORDER [None]
  - MUSCULAR WEAKNESS [None]
  - PYREXIA [None]
  - RASH [None]
